FAERS Safety Report 7919269-1 (Version None)
Quarter: 2011Q4

REPORT INFORMATION
  Report Type: 
  Country: None (occurrence: None)
  Receive Date: 20111116
  Receipt Date: 20111116
  Transmission Date: 20120403
  Serious: No
  Sender: FDA-Public Use
  Company Number: None

PATIENT

DRUGS (1)
  1. TUBERCULIN PURIFIED PROTEIN DERIVATIVE (MANTOUX) 10 TESTS (1ML) 5TU PP [Suspect]
     Indication: MYCOBACTERIUM TUBERCULOSIS COMPLEX TEST
     Dosage: 0.1ML YEARLY SQ
     Route: 058
     Dates: start: 20111010

REACTIONS (1)
  - INDURATION [None]
